FAERS Safety Report 21555816 (Version 2)
Quarter: 2022Q4

REPORT INFORMATION
  Report Type: Other
  Country: US (occurrence: US)
  Receive Date: 20221104
  Receipt Date: 20221111
  Transmission Date: 20230113
  Serious: Yes (Death, Hospitalization, Other)
  Sender: FDA-Public Use
  Company Number: US-ROCHE-3198292

PATIENT
  Age: 60 Year
  Sex: Female
  Weight: 129.39 kg

DRUGS (7)
  1. OCREVUS [Suspect]
     Active Substance: OCRELIZUMAB
     Indication: Primary progressive multiple sclerosis
     Dosage: DATE OF TREATMENT: 22/MAY/2020, 20/NOV/2020;  21/MAY/2021; 19/NOV/2021; 20/MAY/2022;
     Route: 042
     Dates: end: 20220520
  2. OCREVUS [Suspect]
     Active Substance: OCRELIZUMAB
     Indication: Multiple sclerosis
  3. MS CONTIN [Concomitant]
     Active Substance: MORPHINE SULFATE
  4. BACLOFEN [Concomitant]
     Active Substance: BACLOFEN
  5. ASPIRIN [Concomitant]
     Active Substance: ASPIRIN
  6. AMITRIPTYLINE [Concomitant]
     Active Substance: AMITRIPTYLINE
  7. DULOXETINE [Concomitant]
     Active Substance: DULOXETINE

REACTIONS (9)
  - Death [Fatal]
  - Decreased appetite [Fatal]
  - Decubitus ulcer [Fatal]
  - Motor dysfunction [Fatal]
  - Urinary tract infection [Unknown]
  - Blood glucose decreased [Recovered/Resolved]
  - Colitis [Recovered/Resolved]
  - Headache [Recovered/Resolved]
  - Pain [Recovered/Resolved]

NARRATIVE: CASE EVENT DATE: 20220101
